FAERS Safety Report 8532874-7 (Version None)
Quarter: 2012Q3

REPORT INFORMATION
  Report Type: 
  Country: None (occurrence: None)
  Receive Date: 20120724
  Receipt Date: 20120716
  Transmission Date: 20120928
  Serious: No
  Sender: FDA-Public Use
  Company Number: US-B.I. PHARMACEUTICALS,INC./RIDGEFIELD-2012-BP-15813BP

PATIENT
  Sex: Female

DRUGS (8)
  1. SPIRIVA [Suspect]
     Route: 048
     Dates: start: 20120716, end: 20120716
  2. MECLIZINE [Concomitant]
     Indication: DIZZINESS
  3. MORPHINE SULFATE [Concomitant]
     Indication: PAIN
  4. XANAX [Concomitant]
     Indication: NERVOUS SYSTEM DISORDER
  5. SPIRIVA [Suspect]
     Indication: CHRONIC OBSTRUCTIVE PULMONARY DISEASE
     Dosage: 18 MCG
     Route: 055
  6. ONDANSETRON [Concomitant]
     Indication: NAUSEA
  7. DEXAMETHASONE [Concomitant]
  8. RANITIDINE [Concomitant]
     Indication: GASTROOESOPHAGEAL REFLUX DISEASE

REACTIONS (1)
  - INCORRECT ROUTE OF DRUG ADMINISTRATION [None]
